FAERS Safety Report 6822919-4 (Version None)
Quarter: 2010Q3

REPORT INFORMATION
  Report Type: 
  Country: None (occurrence: None)
  Receive Date: 20100702
  Receipt Date: 20100628
  Transmission Date: 20110219
  Serious: Yes (Hospitalization)
  Sender: FDA-Public Use
  Company Number: DSU-2010-03024

PATIENT
  Age: 43 Year
  Sex: Male
  Weight: 85.7298 kg

DRUGS (8)
  1. BENICAR [Suspect]
     Indication: HYPERTENSION
     Dosage: 40 MG (20 MG,BID), PER ORAL
     Route: 048
     Dates: start: 20050101, end: 20100501
  2. BLOOD PRESSURE MEDICATION (ANTIHYPERTENSIVES) [Suspect]
     Indication: HYPERTENSION
     Dosage: PER ORAL
     Route: 048
     Dates: start: 20100501, end: 20100501
  3. LISINOPRIL (LISINOPRIL)(40 MILLIGRAM, TABLET) (LISINOPRIL) [Suspect]
     Indication: HYPERTENSION
     Dosage: 40 MG (40 MG,BID), PER ORAL
     Route: 048
     Dates: start: 20100528
  4. CARVEDILOL (CARVEDILOL) (12.5 MILLIORAM) (CARVEDILOL) [Concomitant]
  5. FOSRENOL (LANTHANUM CARBONATE) (1000 MILLIGRAM)(LANTHANUM CARBONATE [Concomitant]
  6. MULTIVITAMINS (ERGOCALCIFEROL, ASCORBIC ACID, FOLIC ACID, THIAMINE HYD [Concomitant]
  7. RENVELA (SEVELAMER CARBONATE) (800 MILLIGRAM)(SEVELAMER CARBONATE) [Concomitant]
  8. SENSIPAR (CINACALCET HYDROCHLORIDE) (30 MILL IGRAM) (CINACALCET HYDROC [Concomitant]

REACTIONS (6)
  - DIALYSIS [None]
  - ERYTHEMA [None]
  - HYPERTENSION [None]
  - OEDEMA PERIPHERAL [None]
  - PAIN IN EXTREMITY [None]
  - RENAL DISORDER [None]
